FAERS Safety Report 9850942 (Version 1)
Quarter: 2014Q1

REPORT INFORMATION
  Report Type: Spontaneous
  Country: JP (occurrence: None)
  Receive Date: 20140124
  Receipt Date: 20140124
  Transmission Date: 20141002
  Serious: Yes (Other)
  Sender: FDA-Public Use
  Company Number: JP-ZYDUS-002484

PATIENT
  Sex: Male

DRUGS (2)
  1. ALPRAZOLAM (ALPRAZOLAM) [Suspect]
     Dosage: 2.80  MG
  2. PAROXETINE (PAROXETINE) [Suspect]
     Dosage: 30.00 MG

REACTIONS (2)
  - Overdose [None]
  - Electrocardiogram QT prolonged [None]
